FAERS Safety Report 19593257 (Version 1)
Quarter: 2021Q3

REPORT INFORMATION
  Report Type: Other
  Country: ES (occurrence: ES)
  Receive Date: 20210722
  Receipt Date: 20210722
  Transmission Date: 20211014
  Serious: Yes (Hospitalization, Other)
  Sender: FDA-Public Use
  Company Number: ES-DENTSPLY-2021SCDP000202

PATIENT
  Age: 44 Year
  Sex: Female

DRUGS (3)
  1. EPINEPHRINE. [Suspect]
     Active Substance: EPINEPHRINE
     Indication: GENERAL ANAESTHESIA
     Dosage: UNK SOLUTION AT A FINAL CONCENTRATION OF 1:100,000
  2. SODIUM CHLORIDE. [Concomitant]
     Active Substance: SODIUM CHLORIDE
     Indication: PRODUCT USED FOR UNKNOWN INDICATION
     Dosage: UNK SOLUTION
  3. LIDOCAINE. [Suspect]
     Active Substance: LIDOCAINE
     Indication: GENERAL ANAESTHESIA
     Dosage: 0.05 PERCENT SOLUTION

REACTIONS (3)
  - Neurotoxicity [Recovered/Resolved]
  - Paralysis [Recovered/Resolved]
  - Axillary nerve injury [Recovered/Resolved]
